FAERS Safety Report 5004584-4 (Version None)
Quarter: 2006Q2

REPORT INFORMATION
  Report Type: 
  Country: None (occurrence: None)
  Receive Date: 20060512
  Receipt Date: 20041011
  Transmission Date: 20061013
  Serious: Yes (Death, Other)
  Sender: FDA-Public Use
  Company Number: 2004076502

PATIENT
  Age: 11 Year
  Sex: Male

DRUGS (2)
  1. ZOLOFT [Suspect]
     Indication: DEPRESSION
     Dates: start: 20020909
  2. EFFEXOR [Suspect]
     Indication: ANXIETY DISORDER
     Dates: start: 20021001

REACTIONS (9)
  - ANXIETY [None]
  - COMPLETED SUICIDE [None]
  - CONVERSION DISORDER [None]
  - DELIRIUM [None]
  - DRUG EFFECT DECREASED [None]
  - HOSTILITY [None]
  - MANIA [None]
  - SCHOOL REFUSAL [None]
  - SUICIDAL IDEATION [None]
